FAERS Safety Report 8547890-9 (Version None)
Quarter: 2012Q3

REPORT INFORMATION
  Report Type: 
  Country: None (occurrence: None)
  Receive Date: 20120728
  Receipt Date: 20120717
  Transmission Date: 20120928
  Serious: Yes (Hospitalization, Disabling, Other)
  Sender: FDA-Public Use
  Company Number: US-009507513-1203USA03297

PATIENT

DRUGS (9)
  1. FOSAMAX [Suspect]
     Dosage: 70 MG, UNK
     Route: 048
     Dates: start: 20080402, end: 20080531
  2. FOSAMAX [Suspect]
     Indication: OSTEOPENIA
     Dosage: 10 MG, UNK
     Route: 048
     Dates: start: 19990210
  3. FOSAMAX [Suspect]
     Dosage: 70 MG, UNK
     Route: 048
     Dates: start: 20020808, end: 20080101
  4. FOSAMAX [Suspect]
     Dosage: 5 MG, QD
     Route: 048
     Dates: start: 19990801, end: 20080101
  5. FOSAMAX [Suspect]
     Dosage: 35 MG, UNK
     Route: 048
     Dates: start: 20080930, end: 20081206
  6. CALCIUM (UNSPECIFIED) [Concomitant]
     Dosage: 1000-2000
     Dates: start: 19970101
  7. FOSAMAX [Suspect]
     Indication: OSTEOPOROSIS
     Dosage: 35 MG, QW
     Route: 048
     Dates: start: 19990801, end: 20080101
  8. CENTRUM (MINERALS (UNSPECIFIED) (+) VITAMINS (UNSPECIFIED)) [Concomitant]
     Dates: start: 19970101
  9. VITAMIN D (UNSPECIFIED) [Concomitant]
     Dosage: 500 MG, UNK
     Dates: start: 19970101

REACTIONS (22)
  - FEMUR FRACTURE [None]
  - OSTEOPOROSIS [None]
  - URINARY RETENTION [None]
  - FALL [None]
  - HAEMATOMA [None]
  - BURSITIS [None]
  - STRESS FRACTURE [None]
  - PNEUMONIA [None]
  - HYPERTENSION [None]
  - LEUKOCYTOSIS [None]
  - BLOOD CALCIUM DECREASED [None]
  - HYPERGLYCAEMIA [None]
  - BASAL CELL CARCINOMA [None]
  - HIP FRACTURE [None]
  - FOOT FRACTURE [None]
  - LOW TURNOVER OSTEOPATHY [None]
  - ANAEMIA POSTOPERATIVE [None]
  - HYPOKALAEMIA [None]
  - CERVICAL DYSPLASIA [None]
  - PAPILLOMA VIRAL INFECTION [None]
  - MEASLES [None]
  - VARICELLA [None]
